FAERS Safety Report 8381609 (Version 8)
Quarter: 2012Q4

REPORT INFORMATION
  Report Type: 
  Country: US (occurrence: US)
  Receive Date: 20120131
  Receipt Date: 20120926
  Transmission Date: 20130627
  Serious: Yes (Hospitalization, Other)
  Sender: FDA-Public Use
  Company Number: US-009507513-1201USA03927

PATIENT

DRUGS (4)
  1. FOSAMAX [Suspect]
     Indication: OSTEOPENIA
     Dosage: 10 mg, qd
     Route: 048
     Dates: start: 19980804, end: 200101
  2. FOSAMAX [Suspect]
     Dosage: 70 mg, qw
     Route: 048
     Dates: start: 200101, end: 201007
  3. MK-9278 [Concomitant]
     Dates: start: 1997
  4. CALCIUM (UNSPECIFIED) [Concomitant]
     Dates: start: 1997

REACTIONS (30)
  - Haemorrhage [Unknown]
  - Femur fracture [Unknown]
  - Fall [Unknown]
  - Hyponatraemia [Unknown]
  - Hypovolaemia [Unknown]
  - Hypokalaemia [Unknown]
  - Leukocytosis [Unknown]
  - Femur fracture [Unknown]
  - Gastrooesophageal reflux disease [Unknown]
  - Osteoporosis [Unknown]
  - Dermatitis contact [Unknown]
  - Hypertension [Unknown]
  - Hyperlipidaemia [Unknown]
  - Diverticulitis [Unknown]
  - Meniscus injury [Unknown]
  - Arthritis [Unknown]
  - Urinary tract infection [Unknown]
  - Renal disorder [Unknown]
  - Lymphadenopathy [Unknown]
  - Joint injection [Unknown]
  - Osteoarthritis [Unknown]
  - Carpal tunnel syndrome [Unknown]
  - Limb operation [Unknown]
  - Basal cell carcinoma [Unknown]
  - Knee arthroplasty [Unknown]
  - Diverticulum intestinal [Not Recovered/Not Resolved]
  - Colonoscopy [Not Recovered/Not Resolved]
  - Haematochezia [Unknown]
  - Gastrointestinal haemorrhage [Unknown]
  - Gastric ulcer [Unknown]
